FAERS Safety Report 10878577 (Version 1)
Quarter: 2015Q1

REPORT INFORMATION
  Report Type: Report from Study
  Country: US (occurrence: US)
  Receive Date: 20150302
  Receipt Date: 20150302
  Transmission Date: 20150721
  Serious: No
  Sender: FDA-Public Use
  Company Number: US-ABBVIE-15P-163-1352035-00

PATIENT
  Sex: Male

DRUGS (1)
  1. ANDROGEL [Suspect]
     Active Substance: TESTOSTERONE
     Indication: PRODUCT USED FOR UNKNOWN INDICATION
     Route: 065

REACTIONS (13)
  - Body fat disorder [Unknown]
  - Chest discomfort [Unknown]
  - Breast swelling [Unknown]
  - Libido decreased [Unknown]
  - Body mass index increased [Unknown]
  - Pain [Unknown]
  - Local swelling [Unknown]
  - Muscle atrophy [Unknown]
  - Breast discomfort [Unknown]
  - Asthenia [Unknown]
  - Apathy [Unknown]
  - Psychiatric symptom [Unknown]
  - Depressed mood [Unknown]
